FAERS Safety Report 10432692 (Version 1)
Quarter: 2014Q3

REPORT INFORMATION
  Report Type: Spontaneous
  Country: US (occurrence: US)
  Receive Date: 20140905
  Receipt Date: 20140905
  Transmission Date: 20150326
  Serious: Yes (Death)
  Sender: FDA-Public Use
  Company Number: US-MALLINCKRODT-T201403285

PATIENT
  Age: 1 Year

DRUGS (1)
  1. METHADOSE [Suspect]
     Active Substance: METHADONE HYDROCHLORIDE
     Indication: PRODUCT USED FOR UNKNOWN INDICATION
     Route: 065

REACTIONS (9)
  - Hypotension [Fatal]
  - Overdose [Fatal]
  - Diabetes insipidus [Fatal]
  - Oedema [Fatal]
  - Cyanosis [Fatal]
  - Accidental exposure to product by child [Fatal]
  - Lethargy [Fatal]
  - Cerebellar infarction [Fatal]
  - Pupil fixed [Fatal]
